FAERS Safety Report 10885870 (Version 1)
Quarter: 2015Q1

REPORT INFORMATION
  Report Type: Spontaneous
  Country: CA (occurrence: CA)
  Receive Date: 20150304
  Receipt Date: 20150304
  Transmission Date: 20150721
  Serious: Yes (Other)
  Sender: FDA-Public Use
  Company Number: CA-BAXTER-2015BAX011254

PATIENT
  Age: 40 Year
  Sex: Female

DRUGS (6)
  1. ADRIAMYCIN [Suspect]
     Active Substance: DOXORUBICIN HYDROCHLORIDE
     Indication: SYNOVIAL SARCOMA
  2. IFEX [Suspect]
     Active Substance: IFOSFAMIDE
     Indication: SYNOVIAL SARCOMA
  3. UROMITEXAN (MESNA INJECTION) 100MG/ML [Suspect]
     Active Substance: MESNA
     Indication: SYNOVIAL SARCOMA
  4. IFEX [Suspect]
     Active Substance: IFOSFAMIDE
     Indication: LUNG NEOPLASM MALIGNANT
     Route: 042
  5. ADRIAMYCIN [Suspect]
     Active Substance: DOXORUBICIN HYDROCHLORIDE
     Indication: LUNG NEOPLASM MALIGNANT
     Route: 065
  6. UROMITEXAN (MESNA INJECTION) 100MG/ML [Suspect]
     Active Substance: MESNA
     Indication: LUNG NEOPLASM MALIGNANT
     Route: 042

REACTIONS (1)
  - Vascular pseudoaneurysm [Recovering/Resolving]
